FAERS Safety Report 9661973 (Version 1)
Quarter: 2013Q4

REPORT INFORMATION
  Report Type: Spontaneous
  Country: CN (occurrence: None)
  Receive Date: 20131030
  Receipt Date: 20131030
  Transmission Date: 20140711
  Serious: Yes (Life-Threatening, Hospitalization)
  Sender: FDA-Public Use
  Company Number: 2013P1020544

PATIENT
  Age: 43 Year
  Sex: Female
  Weight: 52.89 kg

DRUGS (1)
  1. CEFTAZIDIME [Suspect]
     Indication: INFECTION PROPHYLAXIS
     Dosage: 2 GM; X1; IV
     Route: 042
     Dates: start: 20130923, end: 20130923

REACTIONS (5)
  - Anaphylactic shock [None]
  - Dermatitis contact [None]
  - Dizziness [None]
  - Apparent life threatening event [None]
  - Fall [None]
